FAERS Safety Report 9221980 (Version 1)
Quarter: 2013Q1

REPORT INFORMATION
  Report Type: Spontaneous
  Country: US (occurrence: None)
  Receive Date: 20120910
  Receipt Date: 20120910
  Transmission Date: 20140127
  Serious: No
  Sender: FDA-Public Use
  Company Number: 1206USA03527

PATIENT
  Sex: Female

DRUGS (1)
  1. ZIOPTAN ( TAFLUPROST) EYE DROPS, SOLUTION [Suspect]
     Dosage: 2 UNK, HS, OPHTHALMIC
     Route: 047

REACTIONS (1)
  - Adverse event [None]
